FAERS Safety Report 21179000 (Version 2)
Quarter: 2022Q3

REPORT INFORMATION
  Report Type: Spontaneous
  Country: CN (occurrence: CN)
  Receive Date: 20220805
  Receipt Date: 20220815
  Transmission Date: 20221026
  Serious: Yes (Hospitalization, Other)
  Sender: FDA-Public Use
  Company Number: CN-GLAXOSMITHKLINE-CN2022APC113557

PATIENT

DRUGS (4)
  1. SERETIDE [Suspect]
     Active Substance: FLUTICASONE PROPIONATE\SALMETEROL XINAFOATE
     Indication: Cough variant asthma
     Dosage: 1 PUFF(S), QD 2-3 YEARS AGO
     Route: 055
  2. SERETIDE [Suspect]
     Active Substance: FLUTICASONE PROPIONATE\SALMETEROL XINAFOATE
     Dosage: 1 PUFF(S), QD HALF A YEAR AGO
     Route: 055
  3. SERETIDE [Suspect]
     Active Substance: FLUTICASONE PROPIONATE\SALMETEROL XINAFOATE
     Dosage: 2 PUFF(S), BID ONE MONTH AGO
     Route: 055
  4. SERETIDE [Suspect]
     Active Substance: FLUTICASONE PROPIONATE\SALMETEROL XINAFOATE
     Dosage: 1 PUFF(S), BID
     Route: 055

REACTIONS (4)
  - Pneumonia [Unknown]
  - Cough [Recovered/Resolved]
  - Inappropriate schedule of product administration [Unknown]
  - Intentional product use issue [Unknown]

NARRATIVE: CASE EVENT DATE: 20220701
